FAERS Safety Report 22393245 (Version 1)
Quarter: 2023Q2

REPORT INFORMATION
  Report Type: Spontaneous
  Country: US (occurrence: US)
  Receive Date: 20230601
  Receipt Date: 20230601
  Transmission Date: 20230722
  Serious: Yes (Hospitalization)
  Sender: FDA-Public Use
  Company Number: US-ALKERMES INC.-ALK-2023-002088

PATIENT
  Age: 30 Year
  Sex: Male

DRUGS (1)
  1. ARISTADA [Suspect]
     Active Substance: ARIPIPRAZOLE LAUROXIL
     Indication: Schizoaffective disorder bipolar type
     Dosage: 882 MILLIGRAM
     Route: 030

REACTIONS (6)
  - Schizoaffective disorder bipolar type [Unknown]
  - Bipolar I disorder [Unknown]
  - Suicidal ideation [Unknown]
  - Homicidal ideation [Unknown]
  - Off label use [Unknown]
  - Treatment noncompliance [Unknown]
